FAERS Safety Report 25999724 (Version 2)
Quarter: 2025Q4

REPORT INFORMATION
  Report Type: Spontaneous
  Country: JP (occurrence: JP)
  Receive Date: 20251105
  Receipt Date: 20251226
  Transmission Date: 20260117
  Serious: Yes (Other)
  Sender: ABBVIE
  Company Number: JP-ABBVIE-6531840

PATIENT
  Age: 95 Year
  Sex: Female

DRUGS (3)
  1. ALPHAGAN P [Suspect]
     Active Substance: BRIMONIDINE TARTRATE
     Indication: Glaucoma
     Dosage: PATIENT ROA- OPHTHALMIC
     Route: 065
     Dates: start: 2022, end: 20251016
  2. LUMIGAN [Suspect]
     Active Substance: BIMATOPROST
     Indication: Glaucoma
     Dosage: PATIENT ROA- OPHTHALMIC
     Route: 065
  3. BRINZOLAMIDE\TIMOLOL MALEATE [Concomitant]
     Active Substance: BRINZOLAMIDE\TIMOLOL MALEATE
     Indication: Glaucoma
     Dosage: PATIENT ROA- OPHTHALMIC
     Route: 065

REACTIONS (1)
  - Corneal opacity [Not Recovered/Not Resolved]

NARRATIVE: CASE EVENT DATE: 20251016
